FAERS Safety Report 9742666 (Version 1)
Quarter: 2013Q4

REPORT INFORMATION
  Report Type: Spontaneous
  Country: US (occurrence: US)
  Receive Date: 20131210
  Receipt Date: 20131210
  Transmission Date: 20140711
  Serious: No
  Sender: FDA-Public Use
  Company Number: US-GILEAD-2009-0025295

PATIENT
  Sex: Female

DRUGS (8)
  1. LETAIRIS [Suspect]
     Indication: PULMONARY ARTERIAL HYPERTENSION
     Route: 048
  2. REVATIO [Concomitant]
  3. DIGOXIN [Concomitant]
  4. LASIX [Concomitant]
  5. PRILOSEC [Concomitant]
  6. POTASSIUM [Concomitant]
  7. IRON [Concomitant]
  8. FOLIC ACID [Concomitant]

REACTIONS (4)
  - Nausea [Unknown]
  - Fluid retention [Unknown]
  - Weight increased [Unknown]
  - Swelling [Unknown]
